FAERS Safety Report 7591398 (Version 4)
Quarter: 2013Q3

REPORT INFORMATION
  Report Type: Spontaneous
  Country: US (occurrence: US)
  Receive Date: 20100917
  Receipt Date: 20130823
  Transmission Date: 20140515
  Serious: Yes (Other)
  Sender: FDA-Public Use
  Company Number: US-ASTRAZENECA-2009SE13275

PATIENT
  Age: 61 Year
  Sex: Female
  Weight: 83.9 kg

DRUGS (21)
  1. SEROQUEL [Suspect]
     Indication: SLEEP DISORDER
     Dosage: SEROQUEL 100 MG AND 400 MG
     Route: 048
  2. SEROQUEL [Suspect]
     Indication: BIPOLAR DISORDER
     Dosage: SEROQUEL 100 MG AND 400 MG
     Route: 048
  3. SEROQUEL [Suspect]
     Indication: SLEEP DISORDER
     Route: 048
  4. SEROQUEL [Suspect]
     Indication: BIPOLAR DISORDER
     Route: 048
  5. SEROQUEL [Suspect]
     Indication: SLEEP DISORDER
     Route: 048
  6. SEROQUEL [Suspect]
     Indication: BIPOLAR DISORDER
     Route: 048
  7. SEROQUEL [Suspect]
     Indication: SLEEP DISORDER
     Route: 048
     Dates: start: 20120407
  8. SEROQUEL [Suspect]
     Indication: BIPOLAR DISORDER
     Route: 048
     Dates: start: 20120407
  9. SYMBICORT PMDI [Suspect]
     Indication: CHRONIC OBSTRUCTIVE PULMONARY DISEASE
     Dosage: 2 PUFFS BID
     Route: 055
     Dates: start: 20120608
  10. PRILOSEC OTC [Suspect]
     Indication: GASTROOESOPHAGEAL REFLUX DISEASE
     Route: 048
     Dates: start: 2010
  11. METHOTREXATE [Suspect]
     Indication: LICHEN PLANUS
     Route: 065
     Dates: start: 201208
  12. TOPAMAX [Concomitant]
     Indication: BIPOLAR DISORDER
  13. SYNTHROID [Concomitant]
     Indication: HYPOTHYROIDISM
     Dates: start: 2000
  14. LOW DOSE ASPIRIN [Concomitant]
     Indication: CARDIAC FAILURE CHRONIC
     Route: 048
  15. VASOTEC [Concomitant]
     Indication: CARDIAC FAILURE CHRONIC
  16. ALDACTONE [Concomitant]
     Indication: CARDIAC FAILURE CHRONIC
  17. HYDROCHLOROTHYIAZIDE [Concomitant]
     Indication: CARDIAC FAILURE CHRONIC
  18. DOXIPEN [Concomitant]
     Indication: DEPRESSION
  19. FOLATE [Concomitant]
     Indication: PROPHYLAXIS
     Dates: start: 201208
  20. ZANTAC [Concomitant]
     Indication: GASTROOESOPHAGEAL REFLUX DISEASE
     Dosage: DAILY
  21. MULTIVITAMIN [Concomitant]

REACTIONS (20)
  - Cerebrovascular accident [Unknown]
  - Aphasia [Unknown]
  - Cardiac failure congestive [Unknown]
  - Insomnia [Unknown]
  - Gastrooesophageal reflux disease [Unknown]
  - Depression [Unknown]
  - Bipolar I disorder [Unknown]
  - Hypoxia [Unknown]
  - Colitis ulcerative [Unknown]
  - Rales [Unknown]
  - Blood potassium decreased [Unknown]
  - Memory impairment [Unknown]
  - Eating disorder [Unknown]
  - Lichen planus [Unknown]
  - Adverse drug reaction [Unknown]
  - Abdominal discomfort [Unknown]
  - Withdrawal syndrome [Unknown]
  - Obsessive-compulsive disorder [Unknown]
  - Intentional drug misuse [Unknown]
  - Drug dose omission [Unknown]
